FAERS Safety Report 9291490 (Version 1)
Quarter: 2013Q2

REPORT INFORMATION
  Report Type: Spontaneous
  Country: IT (occurrence: DE)
  Receive Date: 20130515
  Receipt Date: 20130515
  Transmission Date: 20140414
  Serious: Yes (Other)
  Sender: FDA-Public Use
  Company Number: DE-FRI-1000045119

PATIENT
  Age: 58 Year
  Sex: Female

DRUGS (2)
  1. FOSFOMYCIN [Suspect]
     Indication: URINARY TRACT INFECTION
     Dosage: 3000 MG
     Route: 048
     Dates: start: 20130402, end: 20130402
  2. IBUPROFEN [Concomitant]
     Dosage: 2400 MG
     Dates: start: 20130327

REACTIONS (1)
  - Renal pain [Recovered/Resolved]
